FAERS Safety Report 8842119 (Version 1)
Quarter: 2012Q4

REPORT INFORMATION
  Report Type: Spontaneous
  Country: US (occurrence: None)
  Receive Date: 20121015
  Receipt Date: 20121015
  Transmission Date: 20130627
  Serious: Yes (Hospitalization, Other)
  Sender: FDA-Public Use
  Company Number: None

PATIENT
  Age: 58 Year
  Sex: Female
  Weight: 66.68 kg

DRUGS (1)
  1. BUPROPION HYDROCHLORIDE EXTENDED RELEASE SR [Suspect]
     Indication: SMOKING CESSATION THERAPY
     Dosage: 1 tablet 2x/day po
     Route: 048
     Dates: start: 20120930, end: 20121009

REACTIONS (3)
  - Urticaria [None]
  - Respiratory disorder [None]
  - Anaphylactic reaction [None]
